FAERS Safety Report 9027791 (Version 2)
Quarter: 2013Q1

REPORT INFORMATION
  Report Type: Spontaneous
  Country: DE (occurrence: DE)
  Receive Date: 20130124
  Receipt Date: 20130329
  Transmission Date: 20140127
  Serious: Yes (Death)
  Sender: FDA-Public Use
  Company Number: DE-JNJFOC-20130104999

PATIENT
  Age: 82 Year
  Sex: Female

DRUGS (6)
  1. DUROGESIC SMAT [Suspect]
     Indication: ULCER
     Route: 062
     Dates: start: 20100729
  2. DUROGESIC SMAT [Suspect]
     Indication: ULCER
     Route: 062
     Dates: start: 20100725
  3. DUROGESIC SMAT [Suspect]
     Indication: ULCER
     Route: 062
     Dates: start: 20100722
  4. DUROGESIC SMAT [Suspect]
     Indication: SKIN ULCER
     Route: 062
     Dates: start: 20100729
  5. DUROGESIC SMAT [Suspect]
     Indication: SKIN ULCER
     Route: 062
     Dates: start: 20100725
  6. DUROGESIC SMAT [Suspect]
     Indication: SKIN ULCER
     Route: 062
     Dates: start: 20100722

REACTIONS (2)
  - Wrong technique in drug usage process [Fatal]
  - Dysphagia [Unknown]
